FAERS Safety Report 11480888 (Version 1)
Quarter: 2015Q3

REPORT INFORMATION
  Report Type: Spontaneous
  Country: KR (occurrence: KR)
  Receive Date: 20150909
  Receipt Date: 20150909
  Transmission Date: 20151125
  Serious: Yes (Hospitalization)
  Sender: FDA-Public Use
  Company Number: KR-EISAI MEDICAL RESEARCH-EC-2015-010314

PATIENT

DRUGS (1)
  1. ARICEPT [Suspect]
     Active Substance: DONEPEZIL HYDROCHLORIDE
     Indication: DEMENTIA ALZHEIMER^S TYPE
     Route: 048

REACTIONS (1)
  - Asthenia [Unknown]

NARRATIVE: CASE EVENT DATE: 2015
